FAERS Safety Report 4996622-X (Version None)
Quarter: 2006Q2

REPORT INFORMATION
  Report Type: 
  Country: None (occurrence: None)
  Receive Date: 20060509
  Receipt Date: 20060427
  Transmission Date: 20061013
  Serious: Yes (Death)
  Sender: FDA-Public Use
  Company Number: JP-JNJFOC-20060205715

PATIENT
  Sex: Male

DRUGS (9)
  1. LEUSTATIN [Suspect]
     Indication: NON-HODGKIN'S LYMPHOMA
     Dosage: DOSE NOT SPECIFIED
     Route: 042
  2. CYCLOPHOSPHAMIDE [Suspect]
     Indication: NON-HODGKIN'S LYMPHOMA
     Route: 065
  3. MITOXANTRONE HYDROCHLORIDE [Suspect]
     Indication: NON-HODGKIN'S LYMPHOMA
     Route: 065
  4. CEFEPIME DIHYDROCHLORIDE [Concomitant]
     Route: 065
  5. TAZOBACTAM PIPERACILLIN [Concomitant]
     Route: 065
  6. TAZOBACTAM PIPERACILLIN [Concomitant]
     Route: 065
  7. FLUCONAZOLE [Concomitant]
     Route: 065
  8. SULFAMETHOXAZOLE + TRIMETHOPRIM [Concomitant]
     Route: 048
  9. SULFAMETHOXAZOLE + TRIMETHOPRIM [Concomitant]
     Route: 048

REACTIONS (4)
  - DISEASE PROGRESSION [None]
  - NON-HODGKIN'S LYMPHOMA [None]
  - PLEURAL EFFUSION [None]
  - RESPIRATORY FAILURE [None]
